FAERS Safety Report 13741144 (Version 2)
Quarter: 2018Q2

REPORT INFORMATION
  Report Type: Spontaneous
  Country: FR (occurrence: FR)
  Receive Date: 20170711
  Receipt Date: 20180530
  Transmission Date: 20180711
  Serious: Yes (Hospitalization)
  Sender: FDA-Public Use
  Company Number: FR-ACCORD-053484

PATIENT
  Age: 34 Year
  Sex: Female

DRUGS (3)
  1. FLUOROURACIL ACCORD [Suspect]
     Active Substance: FLUOROURACIL
     Indication: CERVIX CARCINOMA
     Route: 042
     Dates: start: 20170607, end: 20170609
  2. OXALIPLATIN ACCORD [Suspect]
     Active Substance: OXALIPLATIN
     Indication: CERVIX CARCINOMA
     Dosage: SECOND CURE OF FOLFOX REGIMEN
     Route: 042
     Dates: start: 20170607
  3. FOLINIC ACID [Concomitant]
     Active Substance: LEUCOVORIN

REACTIONS (2)
  - Chest pain [Recovered/Resolved with Sequelae]
  - Off label use [Unknown]

NARRATIVE: CASE EVENT DATE: 20170609
